FAERS Safety Report 8351832-9 (Version None)
Quarter: 2012Q2

REPORT INFORMATION
  Report Type: 
  Country: None (occurrence: None)
  Receive Date: 20120511
  Receipt Date: 20120503
  Transmission Date: 20120825
  Serious: No
  Sender: FDA-Public Use
  Company Number: US-B.I. PHARMACEUTICALS,INC./RIDGEFIELD-2012-BP-10075BP

PATIENT

DRUGS (2)
  1. PRADAXA [Suspect]
  2. XARELTO [Suspect]

REACTIONS (2)
  - NIGHT SWEATS [None]
  - ABDOMINAL DISCOMFORT [None]
